FAERS Safety Report 8052218-7 (Version None)
Quarter: 2012Q1

REPORT INFORMATION
  Report Type: 
  Country: None (occurrence: None)
  Receive Date: 20120118
  Receipt Date: 20120109
  Transmission Date: 20120608
  Serious: Yes (Hospitalization)
  Sender: FDA-Public Use
  Company Number: US-BAYER-2011-038380

PATIENT
  Sex: Female

DRUGS (4)
  1. CEPHALEXIN [Concomitant]
     Dosage: 500 MG, UNK
     Route: 048
  2. HYDROCODONE BITARTRATE AND ACETAMINOPHEN [Concomitant]
     Indication: PAIN
     Dosage: UNK
     Route: 048
     Dates: start: 20090701, end: 20091001
  3. MEDROXYPROGESTERONE [Concomitant]
     Indication: CONTRACEPTION
     Dosage: UNK
     Route: 048
     Dates: start: 20090801
  4. YASMIN [Suspect]
     Dosage: UNK
     Dates: start: 20050101, end: 20070101

REACTIONS (7)
  - CHOLELITHIASIS [None]
  - ANHEDONIA [None]
  - INJURY [None]
  - FEAR [None]
  - PAIN [None]
  - ANXIETY [None]
  - DEEP VEIN THROMBOSIS [None]
